FAERS Safety Report 7931592-3 (Version None)
Quarter: 2011Q4

REPORT INFORMATION
  Report Type: 
  Country: None (occurrence: None)
  Receive Date: 20111121
  Receipt Date: 20111115
  Transmission Date: 20120403
  Serious: Yes (Other)
  Sender: FDA-Public Use
  Company Number: GB-BAYER-2011-111553

PATIENT
  Sex: Female

DRUGS (2)
  1. CLOTRIMAZOLE [Suspect]
     Dosage: UNK
     Dates: start: 20111107
  2. FLUCONAZOLE [Suspect]
     Dosage: UNK
     Dates: start: 20111110

REACTIONS (1)
  - VAGINAL HAEMORRHAGE [None]
